FAERS Safety Report 21764037 (Version 1)
Quarter: 2022Q4

REPORT INFORMATION
  Report Type: Spontaneous
  Country: DE (occurrence: DE)
  Receive Date: 20221222
  Receipt Date: 20221222
  Transmission Date: 20230112
  Serious: Yes (Other)
  Sender: FDA-Public Use
  Company Number: DE-KOREA IPSEN Pharma-2022-34271

PATIENT
  Age: 78 Year
  Sex: Female

DRUGS (3)
  1. LANREOTIDE ACETATE [Suspect]
     Active Substance: LANREOTIDE ACETATE
     Indication: Neuroendocrine tumour
     Route: 058
  2. DEVICE [Suspect]
     Active Substance: DEVICE
     Indication: Neuroendocrine tumour
  3. ELIQUIS [Concomitant]
     Active Substance: APIXABAN
     Indication: Neuroendocrine tumour

REACTIONS (2)
  - Atrial fibrillation [Unknown]
  - Incorrect route of product administration [Unknown]
